FAERS Safety Report 10099410 (Version 2)
Quarter: 2015Q4

REPORT INFORMATION
  Report Type: Spontaneous
  Country: US (occurrence: US)
  Receive Date: 20140423
  Receipt Date: 20151228
  Transmission Date: 20160304
  Serious: Yes (Hospitalization, Other)
  Sender: FDA-Public Use
  Company Number: US-BAYER-2014-058284

PATIENT
  Age: 42 Year
  Sex: Female

DRUGS (17)
  1. OCELLA [Suspect]
     Active Substance: DROSPIRENONE\ETHINYL ESTRADIOL
  2. BABY ASPIRIN [Concomitant]
     Active Substance: ASPIRIN
     Dosage: 81 MG, UNK
     Dates: start: 20061125
  3. SIMVASTATIN. [Concomitant]
     Active Substance: SIMVASTATIN
  4. GIANVI [Suspect]
     Active Substance: DROSPIRENONE\ETHINYL ESTRADIOL
  5. LANSOPRAZOLE. [Concomitant]
     Active Substance: LANSOPRAZOLE
  6. SENNA [Concomitant]
     Active Substance: SENNA LEAF\SENNOSIDES\SENNOSIDES A AND B
  7. ADVIL [Concomitant]
     Active Substance: IBUPROFEN
  8. VICODIN [Concomitant]
     Active Substance: ACETAMINOPHEN\HYDROCODONE BITARTRATE
     Dosage: HALF PILL
     Dates: start: 20061125
  9. BISACODYL. [Concomitant]
     Active Substance: BISACODYL
  10. ESTRADIOL. [Concomitant]
     Active Substance: ESTRADIOL
  11. PRILOSEC [Concomitant]
     Active Substance: OMEPRAZOLE MAGNESIUM
     Dosage: 20 MG, UNK
     Dates: start: 20061125
  12. DOCUSATE [Concomitant]
     Active Substance: DOCUSATE
  13. MAGNESIUM CITRATE. [Concomitant]
     Active Substance: MAGNESIUM CITRATE
  14. YAZ [Suspect]
     Active Substance: DROSPIRENONE\ETHINYL ESTRADIOL
  15. LIPITOR [Concomitant]
     Active Substance: ATORVASTATIN CALCIUM
     Dosage: 10 MG, UNK
     Dates: start: 20061125
  16. YASMIN [Suspect]
     Active Substance: DROSPIRENONE\ETHINYL ESTRADIOL
  17. LACTULOSE. [Concomitant]
     Active Substance: LACTULOSE

REACTIONS (7)
  - Pain [None]
  - Embolism arterial [None]
  - Deep vein thrombosis [Recovered/Resolved]
  - Cerebrovascular accident [None]
  - Injury [None]
  - Emotional distress [None]
  - Thrombosis [None]

NARRATIVE: CASE EVENT DATE: 200611
